FAERS Safety Report 18115089 (Version 1)
Quarter: 2020Q3

REPORT INFORMATION
  Report Type: Other
  Country: GR (occurrence: GR)
  Receive Date: 20200805
  Receipt Date: 20200805
  Transmission Date: 20201103
  Serious: Yes (Hospitalization, Other)
  Sender: FDA-Public Use
  Company Number: GR-VALIDUS PHARMACEUTICALS LLC-GR-2020VAL000652

PATIENT

DRUGS (45)
  1. SPIRONOLACTONE. [Suspect]
     Active Substance: SPIRONOLACTONE
     Indication: NON-HODGKIN^S LYMPHOMA
     Dosage: 100 MG, ONE CYCLE
     Route: 048
     Dates: start: 20200105, end: 20200112
  2. VALACICLOVIR [Suspect]
     Active Substance: VALACYCLOVIR HYDROCHLORIDE
     Indication: NON-HODGKIN^S LYMPHOMA
     Dosage: 500 MG, UNK
     Route: 048
     Dates: start: 20190513, end: 20190516
  3. CISPLATIN. [Suspect]
     Active Substance: CISPLATIN
     Indication: NON-HODGKIN^S LYMPHOMA
     Dosage: 38 MG, UNK
     Route: 042
     Dates: start: 20191119, end: 20191119
  4. CYTARABINE. [Suspect]
     Active Substance: CYTARABINE
     Dosage: 3 G, 2 CYCLES
     Route: 042
     Dates: start: 20200113, end: 20200113
  5. EPOETIN [Suspect]
     Active Substance: ERYTHROPOIETIN
     Indication: ANAEMIA
     Dosage: 1 CYCLE
     Route: 058
     Dates: start: 20190523, end: 20200124
  6. FILGRASTIM [Suspect]
     Active Substance: FILGRASTIM
     Indication: LEUKOPENIA
     Dosage: UNK
     Route: 058
     Dates: start: 20190523, end: 20200117
  7. RITUXIMAB. [Suspect]
     Active Substance: RITUXIMAB
     Dosage: 8 CYCLES
     Route: 042
     Dates: start: 20191013, end: 20191013
  8. AMLODIPINE BESILATE [Suspect]
     Active Substance: AMLODIPINE BESYLATE
     Dosage: UNK
     Route: 058
  9. ETOPOSIDE. [Suspect]
     Active Substance: ETOPOSIDE
     Dosage: UNK
     Route: 058
  10. CISPLATIN. [Suspect]
     Active Substance: CISPLATIN
     Dosage: 38 MG, UNK
     Route: 042
     Dates: start: 20200113, end: 20200113
  11. CHOP [Suspect]
     Active Substance: CYCLOPHOSPHAMIDE\DOXORUBICIN\PREDNISONE\VINCRISTINE
     Dosage: 8 CYCLES
     Route: 065
     Dates: start: 20191013, end: 20191013
  12. AMLODIPINE BESILATE [Suspect]
     Active Substance: AMLODIPINE BESYLATE
     Indication: HYPERTENSION
     Dosage: 5 MG, 1 CYCLE
     Route: 048
     Dates: start: 20190515, end: 20190516
  13. VALACICLOVIR [Suspect]
     Active Substance: VALACYCLOVIR HYDROCHLORIDE
     Dosage: UNK
     Route: 058
  14. VALACICLOVIR [Suspect]
     Active Substance: VALACYCLOVIR HYDROCHLORIDE
     Dosage: 500 G, 1 CYCLE
     Route: 048
     Dates: start: 20200108, end: 20200113
  15. ETOPOSIDE. [Suspect]
     Active Substance: ETOPOSIDE
     Indication: NON-HODGKIN^S LYMPHOMA
     Dosage: 90 MG, 2 CYCLE
     Route: 042
     Dates: start: 20191119, end: 20191119
  16. ETOPOSIDE. [Suspect]
     Active Substance: ETOPOSIDE
     Dosage: 90 MG, 2 CYCLE
     Route: 042
     Dates: start: 20200113, end: 20200113
  17. MEROPENEM. [Suspect]
     Active Substance: MEROPENEM
     Indication: NON-HODGKIN^S LYMPHOMA
     Dosage: 2 G, TID (1 CYCLE 2GX3)
     Route: 042
     Dates: start: 20200103, end: 20200113
  18. RITUXIMAB. [Suspect]
     Active Substance: RITUXIMAB
     Dosage: 2 CYCLES
     Route: 042
     Dates: start: 20191223, end: 20191223
  19. DOXORUBICIN [Suspect]
     Active Substance: DOXORUBICIN
     Indication: NON-HODGKIN^S LYMPHOMA
     Dosage: 75 MG, 8 CYCLES
     Route: 042
     Dates: start: 20190513, end: 20190513
  20. CYTARABINE. [Suspect]
     Active Substance: CYTARABINE
     Indication: NON-HODGKIN^S LYMPHOMA
     Dosage: 2 CYCLES
     Route: 042
     Dates: start: 20191123, end: 20191123
  21. CHLORPHENAMINE [Suspect]
     Active Substance: CHLORPHENIRAMINE MALEATE
     Dosage: UNK
     Route: 042
  22. DOXORUBICIN [Suspect]
     Active Substance: DOXORUBICIN
     Dosage: 8 CYCLES
     Route: 042
     Dates: start: 20191009, end: 20191009
  23. CYTARABINE. [Suspect]
     Active Substance: CYTARABINE
     Dosage: UNK
     Route: 058
  24. CASPOFUNGIN ACETATE. [Suspect]
     Active Substance: CASPOFUNGIN ACETATE
     Indication: NON-HODGKIN^S LYMPHOMA
     Dosage: 50 MG, UNK
     Route: 042
     Dates: start: 20200105, end: 20200113
  25. ESHAP [Suspect]
     Active Substance: CISPLATIN\CYTARABINE\ETOPOSIDE\METHYLPREDNISOLONE (ESHAP)
     Dosage: 2 CYCLES
     Route: 065
     Dates: start: 20191223, end: 20191223
  26. MABTHERA [Suspect]
     Active Substance: RITUXIMAB
     Dosage: 1 CYCLE
     Route: 042
     Dates: start: 20191222, end: 20200113
  27. RITUXIMAB. [Suspect]
     Active Substance: RITUXIMAB
     Indication: DIFFUSE LARGE B-CELL LYMPHOMA
     Dosage: 8 CYCLES
     Route: 042
     Dates: start: 20190513, end: 20190513
  28. RITUXIMAB. [Suspect]
     Active Substance: RITUXIMAB
     Dosage: 2 CYCLES
     Route: 042
     Dates: start: 20191113, end: 20191113
  29. LASIX [Suspect]
     Active Substance: FUROSEMIDE
     Indication: NON-HODGKIN^S LYMPHOMA
     Dosage: 1 CYCLE
     Route: 042
     Dates: start: 20200110, end: 20200113
  30. CISPLATIN. [Suspect]
     Active Substance: CISPLATIN
     Dosage: UNK
     Route: 058
  31. ESHAP [Suspect]
     Active Substance: CISPLATIN\CYTARABINE\ETOPOSIDE\METHYLPREDNISOLONE (ESHAP)
     Indication: DIFFUSE LARGE B-CELL LYMPHOMA
     Dosage: 2 CYCLES
     Route: 065
     Dates: start: 20191113, end: 20191113
  32. HUMAN ALBUMIN [Suspect]
     Active Substance: ALBUMIN HUMAN
     Indication: NON-HODGKIN^S LYMPHOMA
     Dosage: 500 MG, BID (1 CYLCE 50MG X2)
     Route: 042
     Dates: start: 20200110, end: 20200113
  33. RITUXIMAB;VORHYALURONIDASE ALFA [Suspect]
     Active Substance: HYALURONIDASE (HUMAN RECOMBINANT)\RITUXIMAB
     Dosage: 3 CYCLES
     Route: 058
     Dates: start: 20190625, end: 20190625
  34. CHLORPHENAMINE [Suspect]
     Active Substance: CHLORPHENIRAMINE MALEATE
     Indication: NON-HODGKIN^S LYMPHOMA
     Dosage: 1 CYCLE
     Route: 048
     Dates: start: 20200110, end: 20200112
  35. DOXORUBICIN [Suspect]
     Active Substance: DOXORUBICIN
     Dosage: UNK
     Route: 058
  36. MABTHERA [Suspect]
     Active Substance: RITUXIMAB
     Indication: NON-HODGKIN^S LYMPHOMA
     Dosage: 6 CYCLES
     Route: 058
     Dates: start: 20190625, end: 20191009
  37. RITUXIMAB;VORHYALURONIDASE ALFA [Suspect]
     Active Substance: HYALURONIDASE (HUMAN RECOMBINANT)\RITUXIMAB
     Indication: DIFFUSE LARGE B-CELL LYMPHOMA
     Dosage: 3 CYCLES
     Route: 058
     Dates: start: 20190513, end: 20190513
  38. RITUXIMAB;VORHYALURONIDASE ALFA [Suspect]
     Active Substance: HYALURONIDASE (HUMAN RECOMBINANT)\RITUXIMAB
     Dosage: 1400 MG, UNK
     Route: 058
     Dates: start: 20190625, end: 20190625
  39. CUBICIN [Suspect]
     Active Substance: DAPTOMYCIN
     Indication: NON-HODGKIN^S LYMPHOMA
     Dosage: 350 MG, 1 CYCLE
     Route: 042
     Dates: start: 20200102, end: 20200113
  40. SPIRONOLACTONE. [Suspect]
     Active Substance: SPIRONOLACTONE
     Dosage: UNK
     Route: 042
  41. LOSEC [Suspect]
     Active Substance: OMEPRAZOLE
     Indication: NON-HODGKIN^S LYMPHOMA
     Dosage: 1 CYCLES TWICE
     Route: 042
     Dates: start: 20191223, end: 20200113
  42. CHOP [Suspect]
     Active Substance: CYCLOPHOSPHAMIDE\DOXORUBICIN\PREDNISONE\VINCRISTINE
     Indication: DIFFUSE LARGE B-CELL LYMPHOMA
     Dosage: 8 CYCLES
     Route: 065
     Dates: start: 20190513, end: 20190513
  43. MABTHERA [Suspect]
     Active Substance: RITUXIMAB
     Dosage: 1 CYCLE
     Route: 058
     Dates: start: 20191113, end: 20191210
  44. RITUXIMAB;VORHYALURONIDASE ALFA [Suspect]
     Active Substance: HYALURONIDASE (HUMAN RECOMBINANT)\RITUXIMAB
     Dosage: 1400 MG, 1 CYCLE
     Route: 058
     Dates: start: 20190513, end: 20191210
  45. RITUXIMAB;VORHYALURONIDASE ALFA [Suspect]
     Active Substance: HYALURONIDASE (HUMAN RECOMBINANT)\RITUXIMAB
     Dosage: 1400 MG, UNK
     Route: 058
     Dates: end: 20190625

REACTIONS (2)
  - Diffuse large B-cell lymphoma refractory [Unknown]
  - Disease progression [Unknown]
